FAERS Safety Report 6256617-5 (Version None)
Quarter: 2009Q3

REPORT INFORMATION
  Report Type: 
  Country: None (occurrence: None)
  Receive Date: 20090706
  Receipt Date: 20090626
  Transmission Date: 20100115
  Serious: Yes (Other)
  Sender: FDA-Public Use
  Company Number: JP-JNJFOC-20090700973

PATIENT
  Age: 75 Year
  Sex: Male

DRUGS (2)
  1. ITRACONAZOLE [Suspect]
     Route: 065
  2. ITRACONAZOLE [Suspect]
     Indication: FUNGAL INFECTION
     Route: 065

REACTIONS (2)
  - PANCYTOPENIA [None]
  - RENAL IMPAIRMENT [None]
